FAERS Safety Report 4288764-1 (Version None)
Quarter: 2004Q1

REPORT INFORMATION
  Report Type: 
  Country: None (occurrence: None)
  Receive Date: 20040205
  Receipt Date: 20040202
  Transmission Date: 20041129
  Serious: Yes (Death, Hospitalization)
  Sender: FDA-Public Use
  Company Number: FRWYE544229JAN04

PATIENT
  Sex: Male

DRUGS (7)
  1. EFFEXOR [Suspect]
     Dosage: ORAL
     Route: 048
  2. ANAFRANIL (CLOMIPRAMINE, , 0) [Suspect]
     Dosage: 37.5 MG 1X PER 1 DAY/DURING THE THIRD TERM OF PREGNANCY
     Route: 048
  3. DEPAMIDE (VALPROMIDE, , O) [Suspect]
  4. HALDOL [Suspect]
     Dosage: DURING THE THIRD TERM OF PREGNANCY
  5. SULFARLEM (ANETHOLE TRITHIONE, , 0) [Suspect]
  6. THERALENE (ALIMEMAZINE TARTRATE, , O) [Suspect]
  7. XANAX [Suspect]

REACTIONS (3)
  - DRUG EXPOSURE DURING PREGNANCY [None]
  - FOETAL DISTRESS SYNDROME [None]
  - PREMATURE BABY [None]
